FAERS Safety Report 7384133-6 (Version None)
Quarter: 2011Q1

REPORT INFORMATION
  Report Type: 
  Country: None (occurrence: None)
  Receive Date: 20110330
  Receipt Date: 20110325
  Transmission Date: 20110831
  Serious: Yes (Hospitalization)
  Sender: FDA-Public Use
  Company Number: A0920078A

PATIENT
  Age: 74 Year
  Sex: Female

DRUGS (10)
  1. CALCIUM WITH VITAMIN D [Concomitant]
  2. NIASPAN [Suspect]
     Route: 065
  3. ULTRAM [Concomitant]
  4. FOLIC ACID [Concomitant]
  5. UNKNOWN MEDICATION [Concomitant]
  6. PLAVIX [Concomitant]
  7. PREDNISONE [Concomitant]
  8. ASPIRIN [Concomitant]
  9. COENZYME Q10 [Concomitant]
  10. LOVAZA [Suspect]
     Dosage: 2G TWICE PER DAY
     Route: 048

REACTIONS (10)
  - DYSPHAGIA [None]
  - THROAT TIGHTNESS [None]
  - BURN OESOPHAGEAL [None]
  - BURNING SENSATION MUCOSAL [None]
  - EPISTAXIS [None]
  - CORONARY ARTERY DISEASE [None]
  - DRUG ADMINISTRATION ERROR [None]
  - OROPHARYNGEAL PAIN [None]
  - CORONARY ARTERIAL STENT INSERTION [None]
  - FOREIGN BODY [None]
